FAERS Safety Report 7216710-7 (Version None)
Quarter: 2011Q1

REPORT INFORMATION
  Report Type: 
  Country: None (occurrence: None)
  Receive Date: 20110110
  Receipt Date: 20110105
  Transmission Date: 20110831
  Serious: No
  Sender: FDA-Public Use
  Company Number: US-BIOGENIDEC-2011BI000502

PATIENT
  Sex: Female

DRUGS (1)
  1. TYSABRI [Suspect]
     Indication: MULTIPLE SCLEROSIS
     Route: 042

REACTIONS (8)
  - BACK PAIN [None]
  - DRUG HYPERSENSITIVITY [None]
  - MYALGIA [None]
  - MOOD SWINGS [None]
  - CHILLS [None]
  - SUICIDAL IDEATION [None]
  - MULTIPLE SCLEROSIS [None]
  - HEADACHE [None]
